FAERS Safety Report 6718354-X (Version None)
Quarter: 2010Q2

REPORT INFORMATION
  Report Type: 
  Country: None (occurrence: None)
  Receive Date: 20100510
  Receipt Date: 20100425
  Transmission Date: 20101027
  Serious: Yes (Death)
  Sender: FDA-Public Use
  Company Number: IN-BAUSCH-2010BL002296

PATIENT
  Age: 25 Year
  Sex: Female

DRUGS (1)
  1. ATROPINE [Suspect]
     Indication: PALPITATIONS
     Route: 042

REACTIONS (3)
  - CARDIAC ARREST [None]
  - HYPOTENSION [None]
  - RHABDOMYOLYSIS [None]
